FAERS Safety Report 15285557 (Version 1)
Quarter: 2018Q3

REPORT INFORMATION
  Report Type: Spontaneous
  Country: US (occurrence: US)
  Receive Date: 20180801
  Receipt Date: 20180801
  Transmission Date: 20181010
  Serious: No
  Sender: FDA-Public Use
  Company Number: None

PATIENT
  Age: 51 Year
  Sex: Female
  Weight: 63.05 kg

DRUGS (2)
  1. PRASUGREL. [Suspect]
     Active Substance: PRASUGREL
     Indication: CAROTID ARTERY OCCLUSION
     Route: 048
     Dates: start: 20180420, end: 20180622
  2. PRASUGREL. [Suspect]
     Active Substance: PRASUGREL
     Indication: CORONARY ANGIOPLASTY
     Route: 048
     Dates: start: 20180420, end: 20180622

REACTIONS (5)
  - Abdominal discomfort [None]
  - Pain [None]
  - Drug intolerance [None]
  - Nausea [None]
  - Fatigue [None]

NARRATIVE: CASE EVENT DATE: 201711
